FAERS Safety Report 13923278 (Version 1)
Quarter: 2017Q3

REPORT INFORMATION
  Report Type: Spontaneous
  Country: US (occurrence: None)
  Receive Date: 20170830
  Receipt Date: 20170830
  Transmission Date: 20171127
  Serious: Yes (Other)
  Sender: FDA-Public Use
  Company Number: None

PATIENT
  Age: 48 Year
  Sex: Female

DRUGS (12)
  1. IBUPROFEN. [Concomitant]
     Active Substance: IBUPROFEN
  2. FERROUS SULFATE. [Concomitant]
     Active Substance: FERROUS SULFATE
  3. LETAIRIS [Suspect]
     Active Substance: AMBRISENTAN
     Indication: PULMONARY ARTERIAL HYPERTENSION
     Route: 048
     Dates: start: 201501
  4. OMEPRAZOLE. [Concomitant]
     Active Substance: OMEPRAZOLE
  5. LEVOTHYROXINE. [Concomitant]
     Active Substance: LEVOTHYROXINE
  6. LETAIRIS [Suspect]
     Active Substance: AMBRISENTAN
     Indication: CONNECTIVE TISSUE DISORDER
     Route: 048
     Dates: start: 201501
  7. PREDNISONE. [Concomitant]
     Active Substance: PREDNISONE
  8. TRAMADOL. [Concomitant]
     Active Substance: TRAMADOL
  9. CODEINE/GUAIFENESIN [Concomitant]
     Active Substance: CODEINE\GUAIFENESIN
  10. LETAIRIS [Suspect]
     Active Substance: AMBRISENTAN
     Indication: HEART DISEASE CONGENITAL
     Route: 048
     Dates: start: 201501
  11. MELOXICAM. [Concomitant]
     Active Substance: MELOXICAM
  12. MYCOPHENYLATE [Concomitant]

REACTIONS (2)
  - Memory impairment [None]
  - Drug dose omission [None]

NARRATIVE: CASE EVENT DATE: 20170829
